FAERS Safety Report 7210807-3 (Version None)
Quarter: 2010Q4

REPORT INFORMATION
  Report Type: 
  Country: None (occurrence: None)
  Receive Date: 20101223
  Receipt Date: 20101215
  Transmission Date: 20110411
  Serious: Yes (Hospitalization, Other)
  Sender: FDA-Public Use
  Company Number: 10P-114-0689174-00

PATIENT
  Age: 71 Year
  Sex: Male

DRUGS (4)
  1. ERYTHROMYCIN [Suspect]
     Indication: PRODUCT USED FOR UNKNOWN INDICATION
     Dosage: 2000 MG (500 MG, 4 IN 1 D), PER ORAL
     Route: 048
  2. BORTEZOMIB [Suspect]
     Indication: MULTIPLE MYELOMA
     Dosage: SEE IMAGE
  3. ESOMEPRAZOLE (ESOMEPRAZOLE) [Concomitant]
  4. ACETAMINOPHEN [Concomitant]

REACTIONS (7)
  - BRONCHOPULMONARY ASPERGILLOSIS [None]
  - DRUG INTERACTION [None]
  - DRUG TOXICITY [None]
  - HEPATIC FUNCTION ABNORMAL [None]
  - INFECTION [None]
  - RENAL FAILURE [None]
  - TUBULOINTERSTITIAL NEPHRITIS [None]
